FAERS Safety Report 4787110-4 (Version None)
Quarter: 2005Q4

REPORT INFORMATION
  Report Type: 
  Country: None (occurrence: None)
  Receive Date: 20051004
  Receipt Date: 20050919
  Transmission Date: 20060501
  Serious: Yes (Other)
  Sender: FDA-Public Use
  Company Number: BR-GLAXOSMITHKLINE-A0575567A

PATIENT
  Sex: Female

DRUGS (1)
  1. NIQUITIN [Suspect]
     Indication: DRUG USE FOR UNKNOWN INDICATION
     Route: 062
     Dates: start: 20050901, end: 20050920

REACTIONS (5)
  - DIZZINESS [None]
  - HALLUCINATION [None]
  - NAUSEA [None]
  - NIGHTMARE [None]
  - VOMITING [None]
